FAERS Safety Report 7301337-9 (Version None)
Quarter: 2011Q1

REPORT INFORMATION
  Report Type: 
  Country: None (occurrence: None)
  Receive Date: 20110113
  Receipt Date: 20101101
  Transmission Date: 20110831
  Serious: No
  Sender: FDA-Public Use
  Company Number: US-001375

PATIENT
  Sex: Male
  Weight: 23.6 kg

DRUGS (2)
  1. KUVAN [Suspect]
     Indication: PHENYLKETONURIA
     Dosage: (500 MG QD ORAL)
     Route: 048
     Dates: start: 20101020
  2. ADDERALL 10 [Concomitant]

REACTIONS (4)
  - PAIN IN EXTREMITY [None]
  - PSYCHOMOTOR HYPERACTIVITY [None]
  - INSOMNIA [None]
  - BACK PAIN [None]
